FAERS Safety Report 9721189 (Version 1)
Quarter: 2013Q4

REPORT INFORMATION
  Report Type: Spontaneous
  Country: US (occurrence: US)
  Receive Date: 20131129
  Receipt Date: 20131129
  Transmission Date: 20140711
  Serious: No
  Sender: FDA-Public Use
  Company Number: US-PFIZER INC-2013338468

PATIENT
  Age: 86 Year
  Sex: Female
  Weight: 54.42 kg

DRUGS (4)
  1. CELEBREX [Suspect]
     Indication: ARTHRITIS
     Dosage: 200 MG, 1X/DAY
     Route: 048
  2. ACETAMINOPHEN [Concomitant]
     Indication: PAIN
     Dosage: UNK
  3. ASPIRIN [Concomitant]
     Dosage: UNK
  4. ICY HOT [Concomitant]
     Indication: PAIN
     Dosage: UNK

REACTIONS (4)
  - Arthritis [Unknown]
  - Movement disorder [Unknown]
  - Pain [Unknown]
  - Ankle fracture [Unknown]
